FAERS Safety Report 16451441 (Version 4)
Quarter: 2021Q2

REPORT INFORMATION
  Report Type: Spontaneous
  Country: US (occurrence: US)
  Receive Date: 20190619
  Receipt Date: 20210628
  Transmission Date: 20210716
  Serious: Yes (Other)
  Sender: FDA-Public Use
  Company Number: US-COOPERSURGICAL, INC.-US-2019CPS001808

PATIENT
  Age: 27 Year
  Sex: Female
  Weight: 85.71 kg

DRUGS (2)
  1. ADDERALL [Concomitant]
     Active Substance: AMPHETAMINE ASPARTATE\AMPHETAMINE SULFATE\DEXTROAMPHETAMINE SACCHARATE\DEXTROAMPHETAMINE SULFATE
     Indication: PRODUCT USED FOR UNKNOWN INDICATION
     Route: 065
  2. PARAGARD T 380A [Suspect]
     Active Substance: COPPER
     Indication: CONTRACEPTION
     Dosage: UNK
     Route: 015
     Dates: start: 200902

REACTIONS (15)
  - Foreign body in reproductive tract [Not Recovered/Not Resolved]
  - Embedded device [Not Recovered/Not Resolved]
  - Anhedonia [Unknown]
  - Disability [Unknown]
  - Deformity [Unknown]
  - Device breakage [Not Recovered/Not Resolved]
  - Injury associated with device [Unknown]
  - Anxiety [Unknown]
  - Complication of device removal [Not Recovered/Not Resolved]
  - Pain [Unknown]
  - Economic problem [Unknown]
  - Device use issue [Recovered/Resolved]
  - Emotional distress [Unknown]
  - Reproductive complication associated with device [Unknown]
  - Discomfort [Unknown]

NARRATIVE: CASE EVENT DATE: 20190517
